FAERS Safety Report 6692894-4 (Version None)
Quarter: 2010Q2

REPORT INFORMATION
  Report Type: 
  Country: None (occurrence: None)
  Receive Date: 20100419
  Receipt Date: 20100406
  Transmission Date: 20101027
  Serious: Yes (Other)
  Sender: FDA-Public Use
  Company Number: 2010SP020323

PATIENT
  Age: 18 Year
  Sex: Female

DRUGS (1)
  1. IMPLANON [Suspect]
     Dosage: 1 DF
     Dates: start: 20100301

REACTIONS (1)
  - HENOCH-SCHONLEIN PURPURA [None]
